FAERS Safety Report 14163620 (Version 5)
Quarter: 2018Q2

REPORT INFORMATION
  Report Type: Spontaneous
  Country: ES (occurrence: ES)
  Receive Date: 20171107
  Receipt Date: 20180410
  Transmission Date: 20180711
  Serious: Yes (Hospitalization, Other)
  Sender: FDA-Public Use
  Company Number: ES-AUROBINDO-AUR-APL-2017-43258

PATIENT
  Age: 12 Year
  Sex: Male

DRUGS (6)
  1. CIPROFLOXACIN. [Concomitant]
     Active Substance: CIPROFLOXACIN
     Indication: PSEUDOMONAS INFECTION
     Dosage: ()
     Route: 048
  2. HEPARIN [Concomitant]
     Active Substance: HEPARIN SODIUM
     Indication: PROPHYLAXIS
     Dosage: ()
  3. LINEZOLID. [Suspect]
     Active Substance: LINEZOLID
     Indication: ARTHRITIS BACTERIAL
     Dosage: 600 MG EVERY 12 HOURS
     Route: 048
     Dates: start: 20120904, end: 20121017
  4. CIPROFLOXACIN. [Concomitant]
     Active Substance: CIPROFLOXACIN
     Dosage: ()
     Route: 042
  5. LINEZOLID. [Suspect]
     Active Substance: LINEZOLID
     Indication: PSEUDOMONAS INFECTION
     Dosage: ()
     Route: 042
  6. LINEZOLID. [Suspect]
     Active Substance: LINEZOLID
     Indication: OSTEOMYELITIS

REACTIONS (15)
  - Haematuria [Recovered/Resolved]
  - Leukopenia [Recovered/Resolved]
  - Decreased appetite [Unknown]
  - Vomiting [Recovered/Resolved]
  - Toxicity to various agents [Recovered/Resolved]
  - Weight decreased [Recovered/Resolved]
  - Normocytic anaemia [Recovered/Resolved]
  - Pancytopenia [Recovered/Resolved]
  - Dyspepsia [Recovered/Resolved]
  - Thrombocytopenia [Recovered/Resolved]
  - Drug intolerance [Unknown]
  - Self-induced vomiting [Recovered/Resolved]
  - Bone marrow failure [Recovered/Resolved]
  - Asthenia [Not Recovered/Not Resolved]
  - Anaemia [Recovered/Resolved]

NARRATIVE: CASE EVENT DATE: 2012
